FAERS Safety Report 7145863-4 (Version None)
Quarter: 2010Q4

REPORT INFORMATION
  Report Type: 
  Country: None (occurrence: None)
  Receive Date: 20101208
  Receipt Date: 20101129
  Transmission Date: 20110411
  Serious: Yes (Hospitalization)
  Sender: FDA-Public Use
  Company Number: B0686117A

PATIENT
  Age: 35 Year
  Sex: Female

DRUGS (1)
  1. AUGMENTIN [Suspect]
     Indication: PYREXIA
     Route: 048
     Dates: start: 20101113, end: 20101114

REACTIONS (4)
  - FATIGUE [None]
  - OEDEMA PERIPHERAL [None]
  - RASH [None]
  - RASH MACULAR [None]
